FAERS Safety Report 9247826 (Version 3)
Quarter: 2013Q2

REPORT INFORMATION
  Report Type: Spontaneous
  Country: JP (occurrence: JP)
  Receive Date: 20130423
  Receipt Date: 20130625
  Transmission Date: 20140414
  Serious: Yes (Life-Threatening, Other)
  Sender: FDA-Public Use
  Company Number: JP-BRISTOL-MYERS SQUIBB COMPANY-18808808

PATIENT
  Age: 46 Year
  Sex: Male

DRUGS (4)
  1. ABILIFY TABS [Suspect]
     Indication: EMOTIONAL DISORDER
     Route: 048
     Dates: start: 20130228, end: 20130327
  2. DISULFIRAM [Suspect]
     Indication: ABSTAINS FROM ALCOHOL
     Dosage: POWDER
     Route: 048
     Dates: start: 20130212, end: 20130329
  3. HORIZON [Concomitant]
     Dosage: TABS
     Dates: start: 20130212, end: 20130409
  4. VITAMEDIN [Concomitant]
     Dosage: CAPS
     Dates: start: 20120212, end: 20130430

REACTIONS (4)
  - Hepatic function abnormal [Recovering/Resolving]
  - Jaundice cholestatic [Unknown]
  - Off label use [Unknown]
  - Somnolence [Unknown]
